FAERS Safety Report 10252542 (Version 2)
Quarter: 2014Q3

REPORT INFORMATION
  Report Type: Spontaneous
  Country: JP (occurrence: JP)
  Receive Date: 20140623
  Receipt Date: 20140807
  Transmission Date: 20150326
  Serious: Yes (Other)
  Sender: FDA-Public Use
  Company Number: PHHY2014JP076659

PATIENT
  Age: 2 Year
  Sex: Female

DRUGS (5)
  1. VORICONAZOLE. [Interacting]
     Active Substance: VORICONAZOLE
     Dosage: 20 MG/KG, UNK
  2. ETOPOSIDE SANDOZ [Suspect]
     Active Substance: ETOPOSIDE
     Indication: HISTIOCYTOSIS HAEMATOPHAGIC
     Route: 042
  3. VORICONAZOLE. [Interacting]
     Active Substance: VORICONAZOLE
     Dosage: 6 MG/KG, UNK
  4. LASTET [Suspect]
     Active Substance: ETOPOSIDE
     Indication: HISTIOCYTOSIS HAEMATOPHAGIC
  5. CICLOSPORIN [Interacting]
     Active Substance: CYCLOSPORINE
     Indication: HISTIOCYTOSIS HAEMATOPHAGIC

REACTIONS (8)
  - Fungal infection [Recovering/Resolving]
  - Gamma-glutamyltransferase increased [Recovering/Resolving]
  - Drug interaction [Unknown]
  - Drug level fluctuating [Unknown]
  - Liver disorder [Recovering/Resolving]
  - Drug effect decreased [Unknown]
  - Blood beta-D-glucan increased [Unknown]
  - Aspartate aminotransferase increased [Recovering/Resolving]
